FAERS Safety Report 6567704-6 (Version None)
Quarter: 2010Q1

REPORT INFORMATION
  Report Type: 
  Country: None (occurrence: None)
  Receive Date: 20100203
  Receipt Date: 20100126
  Transmission Date: 20100710
  Serious: Yes (Other)
  Sender: FDA-Public Use
  Company Number: US-PFIZER INC-2010011362

PATIENT
  Sex: Female
  Weight: 74.842 kg

DRUGS (2)
  1. DEPO-PROVERA [Suspect]
     Indication: CONTRACEPTION
     Dates: start: 20091201
  2. TEGRETOL-XR [Concomitant]

REACTIONS (1)
  - HAEMORRHAGE URINARY TRACT [None]
